FAERS Safety Report 6915754-X (Version None)
Quarter: 2010Q3

REPORT INFORMATION
  Report Type: 
  Country: None (occurrence: None)
  Receive Date: 20100810
  Receipt Date: 20100726
  Transmission Date: 20110219
  Serious: No
  Sender: FDA-Public Use
  Company Number: A0861991A

PATIENT
  Age: 55 Year
  Sex: Female

DRUGS (7)
  1. PAXIL CR [Suspect]
     Indication: PANIC DISORDER
     Dosage: 25MG PER DAY
     Route: 048
     Dates: start: 20080101
  2. SIMVASTATIN [Concomitant]
  3. DARVOCET [Concomitant]
  4. PERCOCET [Concomitant]
  5. IMITREX [Concomitant]
  6. PROVENTIL [Concomitant]
  7. CEREFOLIN WITH NAC [Concomitant]

REACTIONS (3)
  - ANXIETY [None]
  - FEAR [None]
  - PANIC ATTACK [None]
